FAERS Safety Report 10052880 (Version 1)
Quarter: 2014Q2

REPORT INFORMATION
  Report Type: Spontaneous
  Country: US (occurrence: US)
  Receive Date: 20140402
  Receipt Date: 20140402
  Transmission Date: 20141212
  Serious: Yes (Hospitalization)
  Sender: FDA-Public Use
  Company Number: US-ASTRAZENECA-2014SE20717

PATIENT
  Age: 55 Year
  Sex: Female

DRUGS (14)
  1. SYMBICORT [Suspect]
     Indication: PRODUCT USED FOR UNKNOWN INDICATION
     Dosage: UNKNOWN
     Route: 055
  2. NEXIUM [Suspect]
     Route: 048
  3. ADVAIR DISKUS [Suspect]
     Indication: ASTHMA
     Dosage: 500/50 ONE PUFF TWICE PER DAY
     Route: 055
  4. TIZANIDINE [Concomitant]
  5. HYDROCODONE [Concomitant]
  6. AMLODIPINE [Concomitant]
  7. METFORMIN HYDROCHLORIDE [Concomitant]
  8. HYDROCHLOROTHIAZIDE [Concomitant]
  9. MONTELUKAST SODIUM [Concomitant]
  10. METOCLOPRAMIDE HCL [Concomitant]
  11. CAROTENOIDS [Concomitant]
  12. POTASSIUM SALT [Concomitant]
  13. VITAMIN E [Concomitant]
  14. CETRIZINE HYDROCHLORIDE [Concomitant]

REACTIONS (2)
  - Fall [Unknown]
  - Back injury [Unknown]
